FAERS Safety Report 16628529 (Version 4)
Quarter: 2019Q3

REPORT INFORMATION
  Report Type: Spontaneous
  Country: PT (occurrence: PT)
  Receive Date: 20190725
  Receipt Date: 20190831
  Transmission Date: 20191004
  Serious: Yes (Life-Threatening, Other)
  Sender: FDA-Public Use
  Company Number: PT-AUROBINDO-AUR-APL-2019-043151

PATIENT

DRUGS (18)
  1. PARACETAMOL [Suspect]
     Active Substance: ACETAMINOPHEN
     Indication: PRODUCT USED FOR UNKNOWN INDICATION
     Dosage: 1000 MILLIGRAM, UNK
     Route: 065
  2. REMIFENTANIL POWDER FOR CONCENTRATE FOR SOLUTION FOR INFUSION [Interacting]
     Active Substance: REMIFENTANIL
     Dosage: 0.15 GRAM PER KILOGRAM, UNK
     Route: 042
  3. PARECOXIB [Concomitant]
     Active Substance: PARECOXIB
     Indication: ANALGESIC THERAPY
  4. SEVOFLURANE. [Interacting]
     Active Substance: SEVOFLURANE
     Dosage: UNK, 1,0-1,2% IN A MIX OF 45% OF O2 AND AIR
     Route: 055
  5. PARECOXIB [Concomitant]
     Active Substance: PARECOXIB
     Indication: PRODUCT USED FOR UNKNOWN INDICATION
     Dosage: 40 MILLIGRAM, UNK
     Route: 065
  6. REMIFENTANIL POWDER FOR CONCENTRATE FOR SOLUTION FOR INFUSION [Interacting]
     Active Substance: REMIFENTANIL
     Indication: MAINTENANCE OF ANAESTHESIA
     Dosage: 0.15 MICROGRAM/KILOGRAM, UNK
     Route: 005
  7. MIDAZOLAM [Interacting]
     Active Substance: MIDAZOLAM HYDROCHLORIDE
     Indication: PREMEDICATION
     Dosage: 3 MILLIGRAM, UNK
     Route: 065
     Dates: start: 20180614, end: 20180614
  8. SUGAMMADEX [Concomitant]
     Active Substance: SUGAMMADEX
     Indication: PRODUCT USED FOR UNKNOWN INDICATION
     Dosage: 200 MILLIGRAM, UNK
     Route: 065
  9. PARACETAMOL [Interacting]
     Active Substance: ACETAMINOPHEN
     Indication: ANALGESIC THERAPY
  10. ROCURONIUM [Interacting]
     Active Substance: ROCURONIUM BROMIDE
     Dosage: ,0.33 MG / KG 20 MILLIGRAM
     Route: 065
  11. MIDAZOLAM [Interacting]
     Active Substance: MIDAZOLAM HYDROCHLORIDE
     Indication: ANAESTHETIC PREMEDICATION
  12. PROPOFOL. [Interacting]
     Active Substance: PROPOFOL
     Indication: INDUCTION OF ANAESTHESIA
     Dosage: 150 MILLIGRAM, UNK
     Route: 065
  13. ROCURONIUM [Interacting]
     Active Substance: ROCURONIUM BROMIDE
     Indication: INDUCTION OF ANAESTHESIA
     Dosage: 50 MILLIGRAM, UNK,0.83 MG / KG
     Route: 065
  14. SEVOFLURANE. [Interacting]
     Active Substance: SEVOFLURANE
     Indication: MAINTENANCE OF ANAESTHESIA
     Dosage: UNK
     Route: 016
  15. METAMIZOLE [Interacting]
     Active Substance: METAMIZOLE
     Indication: PRODUCT USED FOR UNKNOWN INDICATION
     Dosage: 2000 MILLIGRAM, UNK
     Route: 016
  16. METAMIZOLE [Interacting]
     Active Substance: METAMIZOLE
     Indication: ANALGESIC THERAPY
  17. FENTANEST [Interacting]
     Active Substance: FENTANYL CITRATE
     Indication: INDUCTION OF ANAESTHESIA
     Dosage: 150 MICROGRAM
     Route: 065
  18. FENTANEST [Interacting]
     Active Substance: FENTANYL CITRATE
     Dosage: 100 MICROGRAM
     Route: 065

REACTIONS (4)
  - Hypertension [Unknown]
  - Neuromuscular block prolonged [Recovered/Resolved]
  - Respiratory acidosis [Unknown]
  - Drug interaction [Unknown]
